FAERS Safety Report 13141127 (Version 1)
Quarter: 2017Q1

REPORT INFORMATION
  Report Type: Spontaneous
  Country: US (occurrence: US)
  Receive Date: 20170123
  Receipt Date: 20170123
  Transmission Date: 20170428
  Serious: No
  Sender: FDA-Public Use
  Company Number: None

PATIENT
  Age: 65 Year
  Sex: Male

DRUGS (13)
  1. FOLIC ACID. [Concomitant]
     Active Substance: FOLIC ACID
  2. ATENOLOL. [Concomitant]
     Active Substance: ATENOLOL
  3. VITAMIN A [Concomitant]
     Active Substance: VITAMIN A
  4. DESONIDE CREAM USP 0.05% [Concomitant]
     Active Substance: DESONIDE
  5. HUMIRA [Suspect]
     Active Substance: ADALIMUMAB
     Indication: RHEUMATOID ARTHRITIS
     Route: 058
     Dates: start: 20150709
  6. ULTRAM [Concomitant]
     Active Substance: TRAMADOL HYDROCHLORIDE
  7. METHOTREXATE. [Concomitant]
     Active Substance: METHOTREXATE
  8. ALLPERINOL [Concomitant]
  9. ALBERTNIAL [Concomitant]
  10. PREDNISONE. [Concomitant]
     Active Substance: PREDNISONE
  11. CLOBETASOL OINTMENT [Concomitant]
     Active Substance: CLOBETASOL
  12. VITAMIN D3 [Concomitant]
     Active Substance: CHOLECALCIFEROL
  13. INDOCIN [Concomitant]
     Active Substance: INDOMETHACIN

REACTIONS (1)
  - Neoplasm malignant [None]

NARRATIVE: CASE EVENT DATE: 201611
